FAERS Safety Report 6834060-5 (Version None)
Quarter: 2010Q3

REPORT INFORMATION
  Report Type: 
  Country: None (occurrence: None)
  Receive Date: 20100712
  Receipt Date: 20070409
  Transmission Date: 20110219
  Serious: No
  Sender: FDA-Public Use
  Company Number: US-PFIZER INC-2007029005

PATIENT
  Sex: Female
  Weight: 61.23 kg

DRUGS (10)
  1. CHANTIX [Suspect]
     Indication: SMOKING CESSATION THERAPY
     Dates: start: 20070405
  2. SSRI [Suspect]
  3. NEXIUM [Concomitant]
     Indication: GASTRIC DISORDER
  4. REGLAN [Concomitant]
     Indication: NAUSEA
  5. CYMBALTA [Concomitant]
     Indication: DEPRESSION
  6. PLAQUENIL [Concomitant]
     Indication: RHEUMATOID ARTHRITIS
  7. RITALIN [Concomitant]
     Indication: FATIGUE
  8. MONTELUKAST SODIUM [Concomitant]
     Indication: MULTIPLE ALLERGIES
  9. ALPRAZOLAM [Concomitant]
  10. OXYCODONE HCL [Concomitant]

REACTIONS (5)
  - ASTHENIA [None]
  - FATIGUE [None]
  - INFLUENZA LIKE ILLNESS [None]
  - NAUSEA [None]
  - PAIN IN EXTREMITY [None]
